FAERS Safety Report 25064266 (Version 1)
Quarter: 2025Q1

REPORT INFORMATION
  Report Type: Report from Study
  Country: US (occurrence: US)
  Receive Date: 20250311
  Receipt Date: 20250311
  Transmission Date: 20250409
  Serious: Yes (Death)
  Sender: BAYER HEALTHCARE PHARMACEUTICALS INC.
  Company Number: US-BAYER-2025A033677

PATIENT
  Age: 70 Year
  Sex: Male
  Weight: 116.1 kg

DRUGS (26)
  1. ADEMPAS [Suspect]
     Active Substance: RIOCIGUAT
     Indication: Pulmonary arterial hypertension
     Dates: start: 20230926
  2. ADEMPAS [Suspect]
     Active Substance: RIOCIGUAT
     Indication: Pulmonary arterial hypertension
     Dosage: 1.0 MG, TID
     Route: 048
  3. FAMOTIDINE [Concomitant]
     Active Substance: FAMOTIDINE
  4. Colace-t [Concomitant]
  5. ORENITRAM [Concomitant]
     Active Substance: TREPROSTINIL
  6. NIFEDIPINE [Concomitant]
     Active Substance: NIFEDIPINE
  7. HYDROCODONE BITARTRATE AND ACETAMINOPHEN [Concomitant]
     Active Substance: ACETAMINOPHEN\HYDROCODONE BITARTRATE
  8. HUMALOG [Concomitant]
     Active Substance: INSULIN LISPRO
  9. POTASSIUM CHLORIDE [Concomitant]
     Active Substance: POTASSIUM CHLORIDE
  10. CITALOPRAM HYDROBROMIDE [Concomitant]
     Active Substance: CITALOPRAM HYDROBROMIDE
  11. OPSUMIT [Concomitant]
     Active Substance: MACITENTAN
  12. BUMETANIDE [Concomitant]
     Active Substance: BUMETANIDE
  13. MAGNESIUM [Concomitant]
     Active Substance: MAGNESIUM
  14. LOSARTAN POTASSIUM [Concomitant]
     Active Substance: LOSARTAN POTASSIUM
  15. ELIQUIS [Concomitant]
     Active Substance: APIXABAN
  16. METOCLOPRAMIDE [Concomitant]
     Active Substance: METOCLOPRAMIDE
  17. ALBUTEROL SULFATE [Concomitant]
     Active Substance: ALBUTEROL SULFATE
  18. ATORVASTATIN CALCIUM [Concomitant]
     Active Substance: ATORVASTATIN CALCIUM
  19. BENADRYL [Concomitant]
     Active Substance: DIPHENHYDRAMINE HYDROCHLORIDE
  20. OXYGEN [Concomitant]
     Active Substance: OXYGEN
  21. ASPIRIN [Concomitant]
     Active Substance: ASPIRIN
  22. FARXIGA [Concomitant]
     Active Substance: DAPAGLIFLOZIN PROPANEDIOL
  23. VITAMIN D3 [Concomitant]
     Active Substance: CHOLECALCIFEROL
  24. PLAVIX [Concomitant]
     Active Substance: CLOPIDOGREL BISULFATE
  25. SODIUM BICARBONATE [Concomitant]
     Active Substance: SODIUM BICARBONATE
  26. TYLENOL [Concomitant]
     Active Substance: ACETAMINOPHEN

REACTIONS (1)
  - Death [Fatal]

NARRATIVE: CASE EVENT DATE: 20250214
